FAERS Safety Report 9624217 (Version 4)
Quarter: 2013Q4

REPORT INFORMATION
  Report Type: Spontaneous
  Country: IT (occurrence: IT)
  Receive Date: 20131015
  Receipt Date: 20131216
  Transmission Date: 20140711
  Serious: Yes (Death, Hospitalization, Other)
  Sender: FDA-Public Use
  Company Number: IT-ABBVIE-13P-083-1156212-00

PATIENT
  Age: 64 Year
  Sex: Female

DRUGS (3)
  1. HUMIRA [Suspect]
     Indication: CROHN^S DISEASE
     Route: 058
     Dates: start: 20121212, end: 20121212
  2. HUMIRA [Suspect]
     Route: 058
     Dates: start: 201212, end: 201212
  3. HUMIRA [Suspect]
     Route: 058
     Dates: start: 201212, end: 20130901

REACTIONS (11)
  - Multi-organ failure [Fatal]
  - Application site dermatitis [Unknown]
  - Renal failure [Unknown]
  - Haemolytic anaemia [Unknown]
  - Neurological symptom [Unknown]
  - Disseminated intravascular coagulation [Unknown]
  - Pneumonia [Fatal]
  - Klebsiella infection [Fatal]
  - Delirium [Unknown]
  - Systemic lupus erythematosus [Unknown]
  - Sepsis [Fatal]
